FAERS Safety Report 16973791 (Version 1)
Quarter: 2019Q4

REPORT INFORMATION
  Report Type: Spontaneous
  Country: FR (occurrence: FR)
  Receive Date: 20191030
  Receipt Date: 20191030
  Transmission Date: 20200122
  Serious: Yes (Hospitalization)
  Sender: FDA-Public Use
  Company Number: FR-ACCORD-159184

PATIENT
  Age: 73 Year
  Sex: Male
  Weight: 55 kg

DRUGS (8)
  1. PACLITAXEL/PACLITAXEL LIPOSOME [Suspect]
     Active Substance: PACLITAXEL
     Indication: LUNG SQUAMOUS CELL CARCINOMA STAGE III
     Dosage: 90 MG/MT SQ ON DAY1, DAY8 AND DAY15 (28 DAY CYCLE)
     Route: 041
     Dates: start: 20190117, end: 20190418
  2. PREVISCAN [Concomitant]
     Dosage: STRENGTH: 20 MG, SCORED TABLET
     Route: 048
  3. DIGOXIN. [Concomitant]
     Active Substance: DIGOXIN
     Route: 048
  4. CARBOPLATIN. [Suspect]
     Active Substance: CARBOPLATIN
     Indication: LUNG SQUAMOUS CELL CARCINOMA STAGE III
     Dosage: AUC 6, THE DAY 1 OF 4-WEEK CYCLES
     Route: 041
     Dates: start: 20190117, end: 20190411
  5. ULTIBRO BREEZHALER [Concomitant]
     Active Substance: GLYCOPYRRONIUM\INDACATEROL
     Route: 055
  6. AIROMIR [Concomitant]
     Active Substance: ALBUTEROL SULFATE
     Route: 055
  7. ZARZIO [Concomitant]
     Active Substance: FILGRASTIM
     Route: 058
  8. ATENOLOL/ATENOLOL HYDROCHLORIDE [Concomitant]
     Route: 048

REACTIONS (1)
  - Pneumonia [Recovered/Resolved]

NARRATIVE: CASE EVENT DATE: 20190420
